FAERS Safety Report 20817437 (Version 2)
Quarter: 2022Q3

REPORT INFORMATION
  Report Type: Spontaneous
  Country: CA (occurrence: CA)
  Receive Date: 20220512
  Receipt Date: 20220902
  Transmission Date: 20221027
  Serious: Yes (Other)
  Sender: FDA-Public Use
  Company Number: CA-SAMSUNG BIOEPIS-SB-2022-10762

PATIENT
  Age: 67 Year
  Sex: Female

DRUGS (6)
  1. INFLIXIMAB [Suspect]
     Active Substance: INFLIXIMAB
     Indication: Colitis ulcerative
     Route: 042
  2. METHOTREXATE [Concomitant]
     Active Substance: METHOTREXATE
     Indication: Immunosuppressant drug therapy
     Dosage: UNKNOWN
     Route: 048
  3. MESALAMINE [Concomitant]
     Active Substance: MESALAMINE
     Indication: Immunosuppressant drug therapy
     Dosage: TABLET (DELAYED AND EXTENDED RELEASE)
     Route: 048
  4. MESALAMINE [Concomitant]
     Active Substance: MESALAMINE
     Indication: Colitis ulcerative
     Route: 048
  5. PREDNISONE [Concomitant]
     Active Substance: PREDNISONE
     Indication: Immunosuppressant drug therapy
     Route: 048
  6. PREDNISONE [Concomitant]
     Active Substance: PREDNISONE
     Indication: Colitis ulcerative
     Route: 048

REACTIONS (6)
  - Condition aggravated [Unknown]
  - Weight decreased [Unknown]
  - Therapy non-responder [Unknown]
  - Drug ineffective [Unknown]
  - Intentional product use issue [Unknown]
  - Off label use [Unknown]
